FAERS Safety Report 23614739 (Version 1)
Quarter: 2024Q1

REPORT INFORMATION
  Report Type: Spontaneous
  Country: US (occurrence: US)
  Receive Date: 20240311
  Receipt Date: 20240311
  Transmission Date: 20240410
  Serious: Yes (Other)
  Sender: FDA-Public Use
  Company Number: US-NOVOPROD-1185513

PATIENT
  Age: 54 Year
  Sex: Male

DRUGS (1)
  1. WEGOVY [Suspect]
     Active Substance: SEMAGLUTIDE
     Indication: Product used for unknown indication
     Dosage: QW
     Route: 058
     Dates: start: 202301, end: 202402

REACTIONS (2)
  - Pancreatic carcinoma [Not Recovered/Not Resolved]
  - Exposure to toxic agent [Not Recovered/Not Resolved]
